FAERS Safety Report 7033955-X (Version None)
Quarter: 2010Q4

REPORT INFORMATION
  Report Type: 
  Country: None (occurrence: None)
  Receive Date: 20101005
  Receipt Date: 20100927
  Transmission Date: 20110411
  Serious: Yes (Death, Other)
  Sender: FDA-Public Use
  Company Number: 2010US003994

PATIENT
  Age: 1 Year

DRUGS (2)
  1. PROGRAF [Suspect]
     Indication: LIVER TRANSPLANT
  2. PROGRAF [Suspect]
     Indication: SMALL INTESTINE TRANSPLANT

REACTIONS (2)
  - CYTOMEGALOVIRUS ENTERITIS [None]
  - TRANSPLANT REJECTION [None]
